FAERS Safety Report 20648246 (Version 2)
Quarter: 2022Q2

REPORT INFORMATION
  Report Type: Spontaneous
  Country: GB (occurrence: GB)
  Receive Date: 20220329
  Receipt Date: 20220404
  Transmission Date: 20220721
  Serious: Yes (Other)
  Sender: FDA-Public Use
  Company Number: GB-MYLANLABS-2021M1014096

PATIENT
  Age: 55 Year
  Sex: Male

DRUGS (12)
  1. CLOZAPINE [Suspect]
     Active Substance: CLOZAPINE
     Indication: Schizophrenia
     Dosage: 325 MILLIGRAM, PM(NOCTE)
     Route: 048
     Dates: start: 20010731
  2. VALPROATE SODIUM [Suspect]
     Active Substance: VALPROATE SODIUM
     Indication: Mania
     Dosage: 800 MILLIGRAM, BID
     Route: 048
  3. SENNA [Concomitant]
     Active Substance: SENNA LEAF\SENNOSIDES\SENNOSIDES A AND B
     Indication: Constipation
     Dosage: 15 MILLIGRAM, BID
     Dates: start: 20210302
  4. DOCUSATE [Concomitant]
     Active Substance: DOCUSATE
     Indication: Constipation
     Dosage: 200 MILLIGRAM, BID
     Route: 048
     Dates: start: 20210302
  5. POLYETHYLENE GLYCOL 3350\POTASSIUM CHLORIDE\SODIUM BICARBONATE\SODIUM [Concomitant]
     Active Substance: POLYETHYLENE GLYCOL 3350\POTASSIUM CHLORIDE\SODIUM BICARBONATE\SODIUM CHLORIDE
     Indication: Constipation
     Dosage: UNK, TID (1 SACHET)
     Route: 048
     Dates: start: 20210419
  6. PROCYCLIDINE [Concomitant]
     Active Substance: PROCYCLIDINE
     Indication: Extrapyramidal disorder
     Dosage: 5 MILLIGRAM, BID
     Route: 048
     Dates: start: 20210601
  7. SCOPOLAMINE HYDROBROMIDE [Concomitant]
     Active Substance: SCOPOLAMINE HYDROBROMIDE
     Indication: Salivary hypersecretion
     Dosage: 300 MICROGRAM, TID
     Route: 048
     Dates: start: 20210601
  8. AMISULPRIDE [Concomitant]
     Active Substance: AMISULPRIDE
     Indication: Psychotic disorder
     Dosage: 600 MILLIGRAM, BID
     Route: 048
     Dates: start: 20210601
  9. CHOLECALCIFEROL [Concomitant]
     Active Substance: CHOLECALCIFEROL
     Indication: Vitamin supplementation
     Dosage: 800 INTERNATIONAL UNIT, QD
     Route: 048
     Dates: start: 20210601
  10. FLUOXETINE [Concomitant]
     Active Substance: FLUOXETINE HYDROCHLORIDE
     Indication: Obsessive thoughts
     Dosage: 60 MILLIGRAM, QD
     Route: 048
     Dates: start: 20210601
  11. DIAZEPAM [Concomitant]
     Active Substance: DIAZEPAM
     Indication: Anxiety
     Dosage: 5 MILLIGRAM, BID
     Route: 048
  12. TAMSULOSIN [Concomitant]
     Active Substance: TAMSULOSIN
     Indication: Enuresis
     Dosage: 400 MICROGRAM, QD
     Route: 048
     Dates: start: 20211221

REACTIONS (3)
  - Thrombocytopenia [Recovering/Resolving]
  - White blood cell count decreased [Not Recovered/Not Resolved]
  - COVID-19 [Recovered/Resolved]

NARRATIVE: CASE EVENT DATE: 20210301
